FAERS Safety Report 16531912 (Version 1)
Quarter: 2019Q3

REPORT INFORMATION
  Report Type: Spontaneous
  Country: ES (occurrence: ES)
  Receive Date: 20190705
  Receipt Date: 20190705
  Transmission Date: 20191004
  Serious: Yes (Other)
  Sender: FDA-Public Use
  Company Number: ES-BAUSCH-BL-2019-019367

PATIENT

DRUGS (2)
  1. VISUDYNE [Suspect]
     Active Substance: VERTEPORFIN
     Indication: CHOROIDAL HAEMANGIOMA
     Route: 042
  2. VISUDYNE [Suspect]
     Active Substance: VERTEPORFIN
     Indication: PRODUCT USE IN UNAPPROVED INDICATION

REACTIONS (2)
  - Retinoschisis [Unknown]
  - Product use in unapproved indication [Unknown]
